FAERS Safety Report 6986742-2 (Version None)
Quarter: 2010Q3

REPORT INFORMATION
  Report Type: 
  Country: None (occurrence: None)
  Receive Date: 20100915
  Receipt Date: 20090724
  Transmission Date: 20110219
  Serious: No
  Sender: FDA-Public Use
  Company Number: US-WYE-H10333209

PATIENT
  Sex: Female
  Weight: 63.56 kg

DRUGS (4)
  1. PRISTIQ [Suspect]
     Indication: IRRITABLE BOWEL SYNDROME
     Route: 048
     Dates: start: 20090717, end: 20090720
  2. PRISTIQ [Suspect]
     Dosage: ^TOOK 1/2 A PRISTIQ TABLET^ WITHOUT MD ORDER
     Route: 048
     Dates: start: 20090721, end: 20090721
  3. SIMVASTATIN [Concomitant]
  4. NORVASC [Concomitant]

REACTIONS (7)
  - CHILLS [None]
  - FATIGUE [None]
  - FEELING ABNORMAL [None]
  - FEELING HOT [None]
  - INTENTIONAL DRUG MISUSE [None]
  - PARAESTHESIA [None]
  - PRESYNCOPE [None]
